FAERS Safety Report 4699892-0 (Version None)
Quarter: 2005Q2

REPORT INFORMATION
  Report Type: 
  Country: None (occurrence: None)
  Receive Date: 20050624
  Receipt Date: 20050318
  Transmission Date: 20051028
  Serious: Yes (Hospitalization)
  Sender: FDA-Public Use
  Company Number: US-MERCK-0503USA03387

PATIENT
  Age: 64 Year
  Sex: Female
  Weight: 68 kg

DRUGS (6)
  1. VIOXX [Suspect]
     Indication: BACK PAIN
     Route: 048
  2. VIOXX [Suspect]
     Indication: ARTHRALGIA
     Route: 048
     Dates: start: 20020602, end: 20030101
  3. VIOXX [Suspect]
     Route: 048
     Dates: start: 20020529, end: 20020602
  4. VIOXX [Suspect]
     Route: 048
  5. VIOXX [Suspect]
     Route: 048
     Dates: start: 20020602, end: 20030101
  6. VIOXX [Suspect]
     Route: 048
     Dates: start: 20020529, end: 20020602

REACTIONS (13)
  - ACTIVATED PARTIAL THROMBOPLASTIN TIME PROLONGED [None]
  - BLOOD CALCIUM INCREASED [None]
  - BLOOD CHLORIDE INCREASED [None]
  - BLOOD UREA INCREASED [None]
  - CEREBROVASCULAR ACCIDENT [None]
  - CHEST PAIN [None]
  - DEPRESSION [None]
  - DIARRHOEA [None]
  - HYPERLIPIDAEMIA [None]
  - HYPERTENSION [None]
  - INTERNATIONAL NORMALISED RATIO DECREASED [None]
  - LOBAR PNEUMONIA [None]
  - POST-TRAUMATIC STRESS DISORDER [None]
